FAERS Safety Report 23346246 (Version 1)
Quarter: 2023Q4

REPORT INFORMATION
  Report Type: Spontaneous
  Country: US (occurrence: None)
  Receive Date: 20231227
  Receipt Date: 20231227
  Transmission Date: 20240110
  Serious: Yes (Other)
  Sender: FDA-Public Use
  Company Number: None

PATIENT
  Age: 76 Year
  Sex: Female

DRUGS (13)
  1. REPATHA [Suspect]
     Active Substance: EVOLOCUMAB
     Indication: Hyperlipidaemia
     Dosage: OTHER FREQUENCY : Q 2 WEEKS;?
     Route: 058
     Dates: start: 20220113
  2. ROSUVASTATIN [Concomitant]
     Active Substance: ROSUVASTATIN
  3. AMLODIPINE [Concomitant]
     Active Substance: AMLODIPINE BESYLATE
  4. ASPIRIN [Concomitant]
     Active Substance: ASPIRIN
  5. MINERALS\VITAMINS [Concomitant]
     Active Substance: MINERALS\VITAMINS
  6. FLONASE [Concomitant]
     Active Substance: FLUTICASONE PROPIONATE
  7. Latanoprost opth. soln [Concomitant]
  8. METOPROLOL SUCCINATE [Concomitant]
     Active Substance: METOPROLOL SUCCINATE
  9. LISINOPRIL [Concomitant]
     Active Substance: LISINOPRIL
  10. NITROSTAT [Concomitant]
     Active Substance: NITROGLYCERIN
  11. CLARITIN [Concomitant]
     Active Substance: LORATADINE
  12. ESOMEPRAZOLE [Concomitant]
     Active Substance: ESOMEPRAZOLE
  13. METFORMIN [Concomitant]
     Active Substance: METFORMIN HYDROCHLORIDE

REACTIONS (3)
  - Back pain [None]
  - Pain in extremity [None]
  - Myalgia [None]

NARRATIVE: CASE EVENT DATE: 20231227
